FAERS Safety Report 11152172 (Version 1)
Quarter: 2015Q2

REPORT INFORMATION
  Report Type: Spontaneous
  Country: FR (occurrence: FR)
  Receive Date: 20150601
  Receipt Date: 20150601
  Transmission Date: 20150821
  Serious: Yes (Life-Threatening)
  Sender: FDA-Public Use
  Company Number: FR-PFIZER INC-2015180869

PATIENT
  Age: 83 Year
  Sex: Male

DRUGS (12)
  1. FIRMAGON [Concomitant]
     Active Substance: DEGARELIX ACETATE
     Dosage: UNK
     Dates: start: 20150423, end: 20150423
  2. RAMIPRIL. [Concomitant]
     Active Substance: RAMIPRIL
     Dosage: UNK
     Dates: end: 20150421
  3. MORPHINE [Concomitant]
     Active Substance: MORPHINE
  4. INEXIUM [Concomitant]
     Active Substance: ESOMEPRAZOLE
  5. SIMVASTATIN. [Concomitant]
     Active Substance: SIMVASTATIN
  6. CORDARONE [Concomitant]
     Active Substance: AMIODARONE HYDROCHLORIDE
  7. LASILIX [Concomitant]
     Active Substance: FUROSEMIDE
     Dosage: UNK
     Dates: end: 20150421
  8. CORTANCYL [Concomitant]
     Active Substance: PREDNISONE
     Dosage: UNK
     Dates: start: 20150414, end: 20150422
  9. FIRMAGON [Concomitant]
     Active Substance: DEGARELIX ACETATE
     Dosage: UNK
     Dates: start: 20150417, end: 20150417
  10. PREVISCAN [Suspect]
     Active Substance: FLUINDIONE
     Dosage: 0.5 DF, UNK
     Route: 048
     Dates: end: 20150419
  11. TRIFLUCAN [Suspect]
     Active Substance: FLUCONAZOLE
     Dosage: 50 MG, UNK
     Route: 048
     Dates: start: 20150415, end: 20150421
  12. XTANDI [Concomitant]
     Active Substance: ENZALUTAMIDE
     Dosage: UNK
     Dates: start: 20150417, end: 20150423

REACTIONS (2)
  - International normalised ratio increased [Recovered/Resolved]
  - Intracranial haematoma [Unknown]

NARRATIVE: CASE EVENT DATE: 20150421
